FAERS Safety Report 7605429-6 (Version None)
Quarter: 2011Q3

REPORT INFORMATION
  Report Type: 
  Country: None (occurrence: None)
  Receive Date: 20110712
  Receipt Date: 20110712
  Transmission Date: 20111222
  Serious: Yes (Other)
  Sender: FDA-Public Use
  Company Number: None

PATIENT
  Age: 57 Year
  Sex: Male
  Weight: 172 kg

DRUGS (2)
  1. DRONEDARONE HCL [Suspect]
     Indication: ATRIAL FIBRILLATION
     Dosage: 400 MG BID PO
     Route: 048
     Dates: start: 20100429, end: 20100729
  2. DRONEDARONE HCL [Suspect]
     Indication: MITRAL VALVE INCOMPETENCE
     Dosage: 400 MG BID PO
     Route: 048
     Dates: start: 20100429, end: 20100729

REACTIONS (4)
  - DYSPNOEA [None]
  - COUGH [None]
  - BRAIN NATRIURETIC PEPTIDE INCREASED [None]
  - WHEEZING [None]
